FAERS Safety Report 6906252-8 (Version None)
Quarter: 2010Q3

REPORT INFORMATION
  Report Type: 
  Country: None (occurrence: None)
  Receive Date: 20100803
  Receipt Date: 20100803
  Transmission Date: 20110219
  Serious: Yes (Hospitalization, Other)
  Sender: FDA-Public Use
  Company Number: None

PATIENT
  Age: 4 Year
  Sex: Male
  Weight: 16.7831 kg

DRUGS (3)
  1. OXCARBAZEPINE [Suspect]
     Indication: EPILEPSY
     Dosage: 3 ML IN A.M. 4 ML IN P.M. 1X AM AND 1 X PM PO APRIL TO MAY
     Route: 048
     Dates: start: 20100405, end: 20100509
  2. OXCARBAZEPINE [Suspect]
     Indication: EPILEPSY
     Dosage: 3 ML IN A.M. 4 ML IN P.M. 1 X AM AND 1 X P.M. PO ,MAY
     Route: 048
     Dates: start: 20100509, end: 20100530
  3. NASONEX [Concomitant]

REACTIONS (4)
  - ABNORMAL BEHAVIOUR [None]
  - DRUG RESISTANCE [None]
  - FRONTAL LOBE EPILEPSY [None]
  - PRODUCT SUBSTITUTION ISSUE [None]
